FAERS Safety Report 13499427 (Version 2)
Quarter: 2017Q2

REPORT INFORMATION
  Report Type: Report from Study
  Country: DK (occurrence: DK)
  Receive Date: 20170501
  Receipt Date: 20170522
  Transmission Date: 20170830
  Serious: Yes (Hospitalization)
  Sender: FDA-Public Use
  Company Number: DK-TESARO, INC-DK-2015TSO00119

PATIENT
  Age: 75 Year
  Sex: Female
  Weight: 49 kg

DRUGS (11)
  1. LIVIAL [Concomitant]
     Active Substance: TIBOLONE
     Indication: MENOPAUSE
     Dosage: 2.5 MG, QOD
     Route: 048
     Dates: start: 2000
  2. NIRAPARIB [Suspect]
     Active Substance: NIRAPARIB
     Indication: OVARIAN CANCER
     Dosage: 300 MG, QD
     Route: 048
     Dates: start: 20150428, end: 20150517
  3. ACYCLOVIR                          /00587301/ [Concomitant]
     Active Substance: ACYCLOVIR
     Dosage: 400 MG, BID
     Route: 048
     Dates: start: 20150612
  4. NIRAPARIB [Suspect]
     Active Substance: NIRAPARIB
     Dosage: 200 MG, QD
     Route: 048
     Dates: start: 20150612
  5. PANTOPRAZOL [Concomitant]
     Active Substance: PANTOPRAZOLE SODIUM
     Indication: GASTROOESOPHAGEAL REFLUX DISEASE
     Dosage: 40 MG, QD
     Route: 048
     Dates: start: 201412
  6. MABLET [Concomitant]
     Indication: CONSTIPATION
     Dosage: 2 TABLETS, QD
     Route: 048
     Dates: start: 20150227
  7. CENTYL MITE W/POTASSIUM CHLORIDE [Concomitant]
     Indication: OEDEMA PERIPHERAL
     Dosage: 1 TABLET, QD
     Route: 048
     Dates: start: 2005
  8. KALEORID [Concomitant]
     Active Substance: POTASSIUM CHLORIDE
     Indication: HYPOKALAEMIA
     Dosage: 750 MG, BID
     Route: 048
     Dates: start: 201501, end: 20150611
  9. KALEORID [Concomitant]
     Active Substance: POTASSIUM CHLORIDE
     Dosage: 1500 UNK, UNK
     Route: 048
     Dates: start: 20150612
  10. ACYCLOVIR                          /00587301/ [Concomitant]
     Active Substance: ACYCLOVIR
     Indication: HERPES SIMPLEX
     Dosage: 200 MG, BID
     Route: 048
     Dates: start: 201301, end: 20150612
  11. IMOVANE [Concomitant]
     Active Substance: ZOPICLONE
     Indication: INSOMNIA
     Dosage: 3.5 MG, HS (AT BEDTIME)
     Route: 048
     Dates: start: 20150612

REACTIONS (2)
  - Pneumonitis [Recovered/Resolved]
  - Thrombocytopenia [Recovered/Resolved]

NARRATIVE: CASE EVENT DATE: 20150522
